FAERS Safety Report 9680870 (Version 2)
Quarter: 2013Q4

REPORT INFORMATION
  Report Type: Report from Study
  Country: US (occurrence: NL)
  Receive Date: 20131111
  Receipt Date: 20131212
  Transmission Date: 20140711
  Serious: Yes (Death)
  Sender: FDA-Public Use
  Company Number: PHHY2013NL127325

PATIENT
  Sex: Male

DRUGS (4)
  1. ZOMETA [Suspect]
     Indication: PROSTATE CANCER METASTATIC
     Dosage: 04 MG/100 ML, ONCE EVERY 04 WEEKS
     Route: 042
     Dates: start: 2010
  2. ZOMETA [Suspect]
     Dosage: 04 MG/100 ML, ONCE EVERY 04 WEEKS
     Route: 042
     Dates: start: 20110421
  3. ZOMETA [Suspect]
     Dosage: 04 MG/100 ML, ONCE EVERY 04 WEEKS
     Route: 042
     Dates: start: 20131016
  4. ZOMETA [Suspect]
     Dosage: 04 MG/100 ML, ONCE EVERY 04 WEEKS
     Route: 042
     Dates: start: 20131022

REACTIONS (2)
  - Death [Fatal]
  - Constipation [Unknown]
